FAERS Safety Report 21519842 (Version 8)
Quarter: 2023Q4

REPORT INFORMATION
  Report Type: Report from Study
  Country: JP (occurrence: None)
  Receive Date: 20221028
  Receipt Date: 20231004
  Transmission Date: 20240110
  Serious: Yes (Hospitalization)
  Sender: FDA-Public Use
  Company Number: JP-Eisai Medical Research-EC-2022-126581

PATIENT
  Age: 74 Year
  Sex: Male
  Weight: 69.7 kg

DRUGS (18)
  1. LENVATINIB [Suspect]
     Active Substance: LENVATINIB
     Indication: Clear cell renal cell carcinoma
     Dosage: STARTING DOSE AT 20 MG, FLUCTUATED DOSAGE
     Route: 048
     Dates: start: 20220819, end: 20220901
  2. LENVATINIB [Suspect]
     Active Substance: LENVATINIB
     Route: 048
     Dates: start: 20220909, end: 20221020
  3. LENVATINIB [Suspect]
     Active Substance: LENVATINIB
     Route: 048
     Dates: start: 20221202, end: 20230406
  4. QUAVONLIMAB [Suspect]
     Active Substance: QUAVONLIMAB
     Indication: Clear cell renal cell carcinoma
     Dosage: MK-1308 425 MG CONTAINS QUAVONLIMAB [MK-1308] 25 MG + PEMBROLIZUMAB [MK-3475] 400 MG
     Route: 042
     Dates: start: 20220819, end: 20220819
  5. QUAVONLIMAB [Suspect]
     Active Substance: QUAVONLIMAB
     Dosage: MK-1308 425 MG CONTAINS QUAVONLIMAB [MK-1308] 25 MG + PEMBROLIZUMAB [MK-3475] 400 MG
     Route: 042
     Dates: start: 20220930, end: 20220930
  6. PEMBROLIZUMAB [Suspect]
     Active Substance: PEMBROLIZUMAB
     Dosage: MK-1308 425 MG CONTAINS QUAVONLIMAB [MK-1308] 25 MG + PEMBROLIZUMAB [MK-3475] 400 MG
     Route: 042
     Dates: start: 20221202, end: 20230224
  7. PEMBROLIZUMAB [Suspect]
     Active Substance: PEMBROLIZUMAB
     Dosage: MK-1308 425 MG CONTAINS QUAVONLIMAB [MK-1308] 25 MG + PEMBROLIZUMAB [MK-3475] 400 MG
     Route: 042
     Dates: start: 20230407, end: 20230519
  8. AMLODIPINE BESYLATE [Concomitant]
     Active Substance: AMLODIPINE BESYLATE
     Dates: start: 200301
  9. SPIRONOLACTONE [Concomitant]
     Active Substance: SPIRONOLACTONE
     Dates: start: 200301
  10. ASPIRIN [Concomitant]
     Active Substance: ASPIRIN
     Dates: start: 200301
  11. LANSOPRAZOLE [Concomitant]
     Active Substance: LANSOPRAZOLE
     Dates: start: 200301
  12. EZETIMIBE [Concomitant]
     Active Substance: EZETIMIBE
     Dates: start: 200501
  13. ATORVASTATIN CALCIUM [Concomitant]
     Active Substance: ATORVASTATIN CALCIUM
     Dates: start: 200501
  14. HEPARINOID [Concomitant]
     Dates: start: 20220820
  15. CLOSTRIDIUM BUTYRICUM SPORES STRAIN M-55 [Concomitant]
     Active Substance: CLOSTRIDIUM BUTYRICUM SPORES STRAIN M-55
     Dates: start: 20220820
  16. SODIUM GUALENATE [Concomitant]
     Active Substance: SODIUM GUALENATE
     Dates: start: 20220820
  17. MICONAZOLE [Concomitant]
     Active Substance: MICONAZOLE
     Dates: start: 20220826, end: 20220831
  18. LOXOPROFEN SODIUM [Concomitant]
     Active Substance: LOXOPROFEN SODIUM
     Dates: start: 20220829, end: 20220929

REACTIONS (3)
  - Colitis [Not Recovered/Not Resolved]
  - Adrenal insufficiency [Recovering/Resolving]
  - Hypokalaemia [Recovered/Resolved]

NARRATIVE: CASE EVENT DATE: 20220901
